FAERS Safety Report 4362318-0 (Version None)
Quarter: 2004Q2

REPORT INFORMATION
  Report Type: 
  Country: None (occurrence: None)
  Receive Date: 20040520
  Receipt Date: 20040520
  Transmission Date: 20050107
  Serious: Yes (Hospitalization)
  Sender: FDA-Public Use
  Company Number: None

PATIENT

DRUGS (1)
  1. METHADONE HCL [Suspect]
     Indication: PAIN
     Dosage: 15 MG PO BID
     Route: 048

REACTIONS (3)
  - DELIRIUM [None]
  - MEDICATION ERROR [None]
  - URINARY TRACT INFECTION [None]
